FAERS Safety Report 6225164-9 (Version None)
Quarter: 2009Q2

REPORT INFORMATION
  Report Type: 
  Country: None (occurrence: None)
  Receive Date: 20090612
  Receipt Date: 20090409
  Transmission Date: 20091009
  Serious: No
  Sender: FDA-Public Use
  Company Number: US-ABBOTT-09P-163-0567375-00

PATIENT
  Sex: Female

DRUGS (19)
  1. HUMIRA [Suspect]
     Indication: RHEUMATOID ARTHRITIS
     Route: 058
     Dates: start: 20080131, end: 20090226
  2. RESTASIS [Concomitant]
     Indication: DRY EYE
     Route: 047
  3. PLAVIX [Concomitant]
     Indication: VERTEBROBASILAR INSUFFICIENCY
     Route: 048
  4. ASPIRIN [Concomitant]
     Indication: CEREBROVASCULAR ACCIDENT
     Route: 048
  5. DIOVAN [Concomitant]
     Indication: HYPERTENSION
     Route: 048
  6. TENORMIN [Concomitant]
     Indication: BLOOD PRESSURE
     Route: 048
  7. NORVASC [Concomitant]
     Indication: BLOOD PRESSURE
     Route: 048
  8. NORVASC [Concomitant]
     Indication: CARDIAC DISORDER
  9. ALDACTONE [Concomitant]
     Indication: DIURETIC THERAPY
     Route: 048
  10. ZANTAC [Concomitant]
     Indication: PROPHYLAXIS AGAINST GASTROINTESTINAL ULCER
     Route: 048
  11. FOLIC ACID [Concomitant]
     Indication: DRUG USE FOR UNKNOWN INDICATION
     Route: 048
  12. FOSAMAX [Concomitant]
     Indication: OSTEOPOROSIS
     Route: 048
  13. CLONAZEPAM [Concomitant]
     Indication: VERTEBROBASILAR INSUFFICIENCY
     Route: 048
  14. CLONAZEPAM [Concomitant]
     Indication: EYE DISORDER
  15. SYNTHROID [Concomitant]
     Indication: HYPOTHYROIDISM
     Route: 048
  16. NEURONTIN [Concomitant]
     Indication: ARTHRALGIA
     Route: 048
  17. MULTI-VITAMIN [Concomitant]
     Indication: VITAMIN SUPPLEMENTATION
     Route: 048
  18. CALCIUM [Concomitant]
     Indication: MINERAL SUPPLEMENTATION
     Route: 048
  19. LOVAZA [Concomitant]
     Indication: MEDICAL DIET
     Route: 048

REACTIONS (5)
  - ARTHRITIS [None]
  - COUGH [None]
  - DYSPHONIA [None]
  - NASOPHARYNGITIS [None]
  - RHINORRHOEA [None]
